FAERS Safety Report 25571608 (Version 1)
Quarter: 2025Q3

REPORT INFORMATION
  Report Type: Report from Study
  Country: IN (occurrence: IN)
  Receive Date: 20250717
  Receipt Date: 20250717
  Transmission Date: 20251020
  Serious: Yes (Death)
  Sender: ROCHE
  Company Number: IN-ROCHE-10000339410

PATIENT
  Age: 56 Year
  Sex: Male

DRUGS (13)
  1. CELLCEPT [Suspect]
     Active Substance: MYCOPHENOLATE MOFETIL
     Indication: Renal transplant
     Route: 048
     Dates: start: 20221118, end: 20250622
  2. TACROLIMUS [Concomitant]
     Active Substance: TACROLIMUS
  3. PREDNISOLONE [Concomitant]
     Active Substance: PREDNISOLONE
     Dates: end: 20230126
  4. PREDNISOLONE [Concomitant]
     Active Substance: PREDNISOLONE
     Dates: end: 20230209
  5. PREDNISOLONE [Concomitant]
     Active Substance: PREDNISOLONE
     Dates: end: 20230222
  6. PREDNISOLONE [Concomitant]
     Active Substance: PREDNISOLONE
     Dates: end: 20230308
  7. PREDNISOLONE [Concomitant]
     Active Substance: PREDNISOLONE
     Dates: end: 20230112
  8. ENTECAVIR [Concomitant]
     Active Substance: ENTECAVIR
  9. ACETAMINOPHEN [Concomitant]
     Active Substance: ACETAMINOPHEN
  10. cremaffin [Concomitant]
  11. ursocol sr [Concomitant]
     Dates: end: 20230130
  12. ETHAMBUTOL HYDROCHLORIDE [Concomitant]
     Active Substance: ETHAMBUTOL HYDROCHLORIDE
     Dates: end: 20230820
  13. PYRIDOXINE [Concomitant]
     Active Substance: PYRIDOXINE
     Dates: end: 20230820

REACTIONS (1)
  - Myocardial infarction [Fatal]

NARRATIVE: CASE EVENT DATE: 20250622
